FAERS Safety Report 25792832 (Version 1)
Quarter: 2025Q3

REPORT INFORMATION
  Report Type: Spontaneous
  Country: EU (occurrence: EU)
  Receive Date: 20250911
  Receipt Date: 20250911
  Transmission Date: 20251021
  Serious: Yes (Other)
  Sender: MYLAN
  Company Number: EU-ORG-100000920-2025000241

PATIENT
  Age: 20 Year
  Sex: Male

DRUGS (1)
  1. PAROXETINE [Interacting]
     Active Substance: PAROXETINE
     Indication: Product used for unknown indication

REACTIONS (5)
  - Chills [Unknown]
  - Agitation [Unknown]
  - Confusional state [Unknown]
  - Tachycardia [Unknown]
  - Drug interaction [Unknown]
